FAERS Safety Report 7940292 (Version 6)
Quarter: 2013Q2

REPORT INFORMATION
  Report Type: Report from Study
  Country: US (occurrence: US)
  Receive Date: 20110511
  Receipt Date: 20130524
  Transmission Date: 20140414
  Serious: Yes (Hospitalization)
  Sender: FDA-Public Use
  Company Number: US-BRISTOL-MYERS SQUIBB COMPANY-15478001

PATIENT
  Age: 65 Year
  Sex: Male

DRUGS (8)
  1. YERVOY [Suspect]
     Indication: MALIGNANT MELANOMA
     Dosage: TAKEN OFF THE STUDY THERAPY ON 05-APR-2011
     Route: 042
     Dates: start: 20101124, end: 20110405
  2. ACETYLSALICYLIC ACID [Concomitant]
     Route: 048
  3. LIPITOR [Concomitant]
     Dosage: TABLET
     Route: 048
  4. ATIVAN [Concomitant]
     Indication: CLAUSTROPHOBIA
     Dosage: 1 DF= 1 MG TAB,TAKE 1 TAB 30 MINS BEFORE MRI SCAN,#6 TABS.
     Route: 048
  5. BABY ASPIRIN [Concomitant]
     Route: 048
  6. BACTRIM DS [Concomitant]
     Dosage: 1 DF= 1 TAB
     Route: 048
  7. OMEPRAZOLE [Concomitant]
     Dosage: TABLET
     Route: 048
  8. PREDNISONE [Concomitant]

REACTIONS (2)
  - Colitis microscopic [Recovered/Resolved with Sequelae]
  - Pyrexia [Recovered/Resolved]
